FAERS Safety Report 6885815-2 (Version None)
Quarter: 2010Q3

REPORT INFORMATION
  Report Type: 
  Country: None (occurrence: None)
  Receive Date: 20100729
  Receipt Date: 20080625
  Transmission Date: 20110219
  Serious: Yes (Hospitalization, Other)
  Sender: FDA-Public Use
  Company Number: US-PFIZER INC-2007068184

PATIENT
  Sex: Female
  Weight: 79.4 kg

DRUGS (1)
  1. CELEBREX [Suspect]
     Indication: ARTHRITIS
     Dates: start: 20040817, end: 20060804

REACTIONS (4)
  - ANXIETY [None]
  - BLOOD PRESSURE [None]
  - GASTRIC DISORDER [None]
  - MYOCARDIAL INFARCTION [None]
